FAERS Safety Report 7953497-4 (Version None)
Quarter: 2011Q4

REPORT INFORMATION
  Report Type: 
  Country: None (occurrence: None)
  Receive Date: 20111202
  Receipt Date: 20111128
  Transmission Date: 20120403
  Serious: Yes (Other)
  Sender: FDA-Public Use
  Company Number: US-PFIZER INC-2011270123

PATIENT
  Sex: Female
  Weight: 72.6 kg

DRUGS (4)
  1. COZAAR [Concomitant]
     Dosage: 100 MG, DAILY
  2. HYDROCORTISONE [Concomitant]
     Indication: VAGINAL CANCER
     Dosage: UNK
     Route: 067
  3. COZAAR [Concomitant]
     Indication: HYPERTENSION
     Dosage: 50 MG, DAILY
  4. PREMARIN [Suspect]
     Indication: ATROPHIC VULVOVAGINITIS
     Dosage: UNK, 1XDAILY
     Route: 067
     Dates: start: 20111024, end: 20111029

REACTIONS (5)
  - THROMBOSIS [None]
  - BURNING SENSATION [None]
  - HAEMORRHAGE [None]
  - LOCAL SWELLING [None]
  - SKIN DISCOLOURATION [None]
